FAERS Safety Report 19826566 (Version 1)
Quarter: 2021Q3

REPORT INFORMATION
  Report Type: Spontaneous
  Country: US (occurrence: US)
  Receive Date: 20210913
  Receipt Date: 20210913
  Transmission Date: 20211014
  Serious: No
  Sender: FDA-Public Use
  Company Number: US-BLUEPRINT MEDICINES CORPORATION-SP-US-2021-001397

PATIENT
  Age: 57 Year
  Sex: Male

DRUGS (1)
  1. AYVAKIT [Suspect]
     Active Substance: AVAPRITINIB
     Indication: GASTROINTESTINAL STROMAL TUMOUR
     Route: 048
     Dates: start: 20191015

REACTIONS (8)
  - Retching [Not Recovered/Not Resolved]
  - Photosensitivity reaction [Not Recovered/Not Resolved]
  - Purpura [Not Recovered/Not Resolved]
  - Cough [Not Recovered/Not Resolved]
  - Erythema [Not Recovered/Not Resolved]
  - Urine output increased [Not Recovered/Not Resolved]
  - Chills [Not Recovered/Not Resolved]
  - Pain in extremity [Not Recovered/Not Resolved]

NARRATIVE: CASE EVENT DATE: 20210820
